FAERS Safety Report 14862141 (Version 1)
Quarter: 2018Q2

REPORT INFORMATION
  Report Type: Spontaneous
  Country: US (occurrence: US)
  Receive Date: 20180422
  Receipt Date: 20180422
  Transmission Date: 20180711
  Serious: No
  Sender: FDA-Public Use
  Company Number: None

PATIENT
  Age: 68 Year
  Sex: Female
  Weight: 56.25 kg

DRUGS (7)
  1. FERMENTED COD LIVER OIL [Concomitant]
  2. DUPIXENT [Suspect]
     Active Substance: DUPILUMAB
     Indication: ECZEMA
     Dosage: ?          QUANTITY:1 DF DOSAGE FORM;?1 INJECTION EVERY 2 WEEKS
     Route: 058
     Dates: start: 20180402
  3. CLOBETASOL PROPIONATE GEL 0.05% [Concomitant]
     Active Substance: CLOBETASOL PROPIONATE
  4. 81 MG ASPIRIN [Concomitant]
     Active Substance: ASPIRIN
  5. PREBIOTIC POWDER [Concomitant]
  6. DOXEPIN [Concomitant]
     Active Substance: DOXEPIN
  7. PROBIOTIC CAPSULE [Concomitant]

REACTIONS (1)
  - Alopecia [None]

NARRATIVE: CASE EVENT DATE: 20180422
